FAERS Safety Report 9552195 (Version 2)
Quarter: 2013Q4

REPORT INFORMATION
  Report Type: Spontaneous
  Country: RU (occurrence: RU)
  Receive Date: 20130925
  Receipt Date: 20131011
  Transmission Date: 20140711
  Serious: Yes (Hospitalization)
  Sender: FDA-Public Use
  Company Number: RU-AMGEN-RUSSP2013066565

PATIENT
  Age: 55 Year
  Sex: Male
  Weight: 82 kg

DRUGS (1)
  1. VECTIBIX [Suspect]
     Indication: RECTAL CANCER METASTATIC
     Dosage: 700 MG, Q3WK
     Route: 042
     Dates: start: 20130515, end: 20130830

REACTIONS (1)
  - Renal failure chronic [Not Recovered/Not Resolved]
